FAERS Safety Report 18998220 (Version 2)
Quarter: 2021Q2

REPORT INFORMATION
  Report Type: Report from Study
  Country: None (occurrence: US)
  Receive Date: 20210311
  Receipt Date: 20210512
  Transmission Date: 20210717
  Serious: Yes (Hospitalization)
  Sender: FDA-Public Use
  Company Number: US-ABBVIE-21P-163-3788100-00

PATIENT
  Age: 78 Year
  Sex: Male

DRUGS (15)
  1. VENETOCLAX. [Suspect]
     Active Substance: VENETOCLAX
     Route: 048
     Dates: start: 20201029, end: 20201124
  2. VENETOCLAX. [Suspect]
     Active Substance: VENETOCLAX
     Route: 048
     Dates: start: 20210112, end: 20210216
  3. AZD?5991. [Concomitant]
     Active Substance: AZD-5991
     Indication: HAEMATOLOGICAL MALIGNANCY
     Route: 042
     Dates: start: 20201030
  4. AZD?5991. [Concomitant]
     Active Substance: AZD-5991
     Route: 042
     Dates: start: 20201103
  5. AZD?5991. [Concomitant]
     Active Substance: AZD-5991
     Route: 042
     Dates: start: 20201208
  6. AZD?5991. [Concomitant]
     Active Substance: AZD-5991
     Route: 042
     Dates: start: 20201223, end: 20210202
  7. VENETOCLAX. [Suspect]
     Active Substance: VENETOCLAX
     Route: 048
     Dates: start: 20201223, end: 20210111
  8. VENETOCLAX. [Suspect]
     Active Substance: VENETOCLAX
     Route: 048
     Dates: start: 20210421, end: 20210426
  9. AZD?5991. [Concomitant]
     Active Substance: AZD-5991
     Route: 042
     Dates: start: 20201110, end: 20201124
  10. VENETOCLAX. [Suspect]
     Active Substance: VENETOCLAX
     Route: 048
     Dates: start: 20210420, end: 20210420
  11. VENETOCLAX. [Suspect]
     Active Substance: VENETOCLAX
     Route: 048
     Dates: start: 20210419, end: 20210419
  12. AZD?5991. [Concomitant]
     Active Substance: AZD-5991
     Route: 042
     Dates: start: 20201103
  13. VENETOCLAX. [Suspect]
     Active Substance: VENETOCLAX
     Route: 048
     Dates: start: 20201028, end: 20201028
  14. VENETOCLAX. [Suspect]
     Active Substance: VENETOCLAX
     Route: 048
     Dates: start: 20201124, end: 20201208
  15. VENETOCLAX. [Suspect]
     Active Substance: VENETOCLAX
     Indication: HAEMATOLOGICAL MALIGNANCY
     Route: 048
     Dates: start: 20201027, end: 20201027

REACTIONS (1)
  - Anal fistula [Not Recovered/Not Resolved]

NARRATIVE: CASE EVENT DATE: 20210216
